FAERS Safety Report 17759531 (Version 2)
Quarter: 2020Q2

REPORT INFORMATION
  Report Type: Report from Study
  Country: CA (occurrence: CA)
  Receive Date: 20200508
  Receipt Date: 20200521
  Transmission Date: 20200714
  Serious: Yes (Hospitalization, Other)
  Sender: FDA-Public Use
  Company Number: NVSC2020CA038920

PATIENT
  Age: 51 Year
  Sex: Female

DRUGS (2)
  1. TASIGNA [Suspect]
     Active Substance: NILOTINIB
     Indication: CHRONIC MYELOID LEUKAEMIA
     Dosage: 300 MG, BID
     Route: 048
     Dates: start: 20200205, end: 20200430
  2. TASIGNA [Suspect]
     Active Substance: NILOTINIB
     Dosage: 150 MG, BID
     Route: 048
     Dates: start: 20200505

REACTIONS (50)
  - Hydrosalpinx [Unknown]
  - Feeling abnormal [Unknown]
  - Fall [Unknown]
  - Eyelid disorder [Recovering/Resolving]
  - Abdominal distension [Unknown]
  - White blood cell count decreased [Unknown]
  - Dry mouth [Unknown]
  - Skin lesion [Unknown]
  - Dizziness [Unknown]
  - Fatigue [Unknown]
  - Balance disorder [Unknown]
  - Coordination abnormal [Unknown]
  - Red cell distribution width abnormal [Unknown]
  - Erythema [Unknown]
  - Skin swelling [Unknown]
  - Malaise [Unknown]
  - Mean cell haemoglobin decreased [Unknown]
  - Alanine aminotransferase increased [Unknown]
  - Vomiting [Unknown]
  - Bone pain [Unknown]
  - Post procedural complication [Unknown]
  - Muscle spasms [Recovered/Resolved]
  - Anxiety [Recovering/Resolving]
  - Weight increased [Unknown]
  - Dyspnoea [Unknown]
  - Gait disturbance [Unknown]
  - Hypertrichosis [Unknown]
  - Pollakiuria [Unknown]
  - Heart rate increased [Unknown]
  - Rash [Recovered/Resolved]
  - Thirst [Unknown]
  - Sleep disorder [Unknown]
  - Muscle twitching [Unknown]
  - Dysmenorrhoea [Unknown]
  - Polycystic ovaries [Unknown]
  - Amylase decreased [Unknown]
  - Peripheral swelling [Unknown]
  - Medical device site inflammation [Unknown]
  - Flank pain [Unknown]
  - Myalgia [Unknown]
  - Feeling hot [Unknown]
  - White blood cell count increased [Unknown]
  - Pain in extremity [Unknown]
  - Muscle spasms [Unknown]
  - Intestinal obstruction [Unknown]
  - Eyelid skin dryness [Unknown]
  - Memory impairment [Unknown]
  - Constipation [Unknown]
  - Headache [Unknown]
  - Asthenia [Unknown]

NARRATIVE: CASE EVENT DATE: 20200330
